FAERS Safety Report 6936806-4 (Version None)
Quarter: 2010Q3

REPORT INFORMATION
  Report Type: 
  Country: None (occurrence: None)
  Receive Date: 20100818
  Receipt Date: 20100806
  Transmission Date: 20110219
  Serious: Yes (Disabling, Other)
  Sender: FDA-Public Use
  Company Number: CAP10000017

PATIENT
  Age: 79 Year
  Sex: Female
  Weight: 72 kg

DRUGS (7)
  1. ACTONEL [Suspect]
     Indication: OSTEOPOROSIS
     Dosage: 35 MG, 1/WEEK, ORAL
     Route: 048
     Dates: start: 20030807, end: 20090527
  2. ETIDRONATE DISODIUM [Suspect]
     Indication: OSTEOPOROSIS
     Dates: start: 20010901, end: 20030701
  3. ALTACE (RAMIPRIL) CAPSULE [Concomitant]
  4. ATENOLOL [Concomitant]
  5. HYDROCHLOROTHIAZIDE [Concomitant]
  6. NORVASC [Concomitant]
  7. PLAVIC [Concomitant]

REACTIONS (3)
  - EXOSTOSIS [None]
  - FEMUR FRACTURE [None]
  - STRESS FRACTURE [None]
